FAERS Safety Report 11758732 (Version 2)
Quarter: 2016Q1

REPORT INFORMATION
  Report Type: Spontaneous
  Country: US (occurrence: US)
  Receive Date: 20151120
  Receipt Date: 20160225
  Transmission Date: 20160525
  Serious: No
  Sender: FDA-Public Use
  Company Number: US-BEH-2015053824

PATIENT
  Age: 74 Year
  Sex: Female

DRUGS (2)
  1. NORMOSOL-R [Suspect]
     Active Substance: MAGNESIUM CHLORIDE\POTASSIUM CHLORIDE\SODIUM ACETATE ANHYDROUS\SODIUM CHLORIDE\SODIUM GLUCONATE
     Dates: start: 20150907
  2. KCENTRA [Suspect]
     Active Substance: COAGULATION FACTOR IX HUMAN\COAGULATION FACTOR VII HUMAN\COAGULATION FACTOR X HUMAN\PROTEIN C\PROTEIN S HUMAN\PROTHROMBIN
     Indication: PRODUCT USED FOR UNKNOWN INDICATION
     Dates: start: 20150907

REACTIONS (1)
  - Drug administration error [Recovered/Resolved]

NARRATIVE: CASE EVENT DATE: 20150907
